FAERS Safety Report 14566996 (Version 1)
Quarter: 2018Q1

REPORT INFORMATION
  Report Type: Spontaneous
  Country: FR (occurrence: FR)
  Receive Date: 20180223
  Receipt Date: 20180223
  Transmission Date: 20180509
  Serious: Yes (Other)
  Sender: FDA-Public Use
  Company Number: FR-BRISTOL-MYERS SQUIBB COMPANY-BMS-2018-015702

PATIENT
  Age: 77 Year
  Sex: Male

DRUGS (1)
  1. OPDIVO [Suspect]
     Active Substance: NIVOLUMAB
     Indication: BRONCHIAL CARCINOMA
     Dosage: 3 MG/KG, Q2WK
     Route: 041
     Dates: start: 20151113, end: 20160216

REACTIONS (5)
  - Mucosal inflammation [Unknown]
  - Asthenia [Unknown]
  - Arthralgia [Unknown]
  - Myalgia [Unknown]
  - Dyspnoea [Unknown]

NARRATIVE: CASE EVENT DATE: 20160201
